FAERS Safety Report 4338621-7 (Version None)
Quarter: 2004Q2

REPORT INFORMATION
  Report Type: 
  Country: None (occurrence: None)
  Receive Date: 20040409
  Receipt Date: 20040329
  Transmission Date: 20050107
  Serious: Yes (Hospitalization, Other)
  Sender: FDA-Public Use
  Company Number: US067580

PATIENT
  Age: 54 Year
  Sex: Male

DRUGS (9)
  1. EPOGEN [Suspect]
     Indication: DIALYSIS
     Dosage: 6000 U, 3 IN 1 WEEKS, SC
     Route: 058
     Dates: start: 20021120, end: 20040213
  2. QUINIDINE SULFATE [Concomitant]
  3. CLONIDINE [Concomitant]
  4. LABETALOL HCL [Concomitant]
  5. DILTIAZEM HYDROCHLORIDE [Concomitant]
  6. VENLAFAXINE HCL [Concomitant]
  7. FLUOXETINE [Concomitant]
  8. PHENYTOIN SODIUM [Concomitant]
  9. MYCOPHENOLATE MOFETIL [Concomitant]

REACTIONS (6)
  - ANTI-ERYTHROPOIETIN ANTIBODY POSITIVE [None]
  - APLASIA PURE RED CELL [None]
  - BLOOD ALBUMIN DECREASED [None]
  - DRUG LEVEL DECREASED [None]
  - THERAPEUTIC RESPONSE DECREASED [None]
  - WHITE BLOOD CELL COUNT INCREASED [None]
